FAERS Safety Report 16109178 (Version 1)
Quarter: 2019Q1

REPORT INFORMATION
  Report Type: Spontaneous
  Country: US (occurrence: US)
  Receive Date: 20190323
  Receipt Date: 20190323
  Transmission Date: 20190418
  Serious: No
  Sender: FDA-Public Use
  Company Number: US-THERAPEUTICSMD-2019TMD00222

PATIENT
  Sex: Female
  Weight: 54.42 kg

DRUGS (1)
  1. IMVEXXY [Suspect]
     Active Substance: ESTRADIOL
     Indication: VULVOVAGINAL DRYNESS
     Dosage: 10 ?G, 2X/WEEK BEFORE BEDTIME
     Route: 067
     Dates: start: 2018, end: 201902

REACTIONS (4)
  - Bladder irritation [Recovered/Resolved]
  - Vaginal discharge [Recovered/Resolved]
  - Off label use [Recovered/Resolved]
  - Abdominal pain lower [Recovered/Resolved]

NARRATIVE: CASE EVENT DATE: 2018
